FAERS Safety Report 10419998 (Version 1)
Quarter: 2014Q2

REPORT INFORMATION
  Report Type: Spontaneous
  Country: CA (occurrence: None)
  Receive Date: 20140624
  Receipt Date: 20140624
  Transmission Date: 20141212
  Serious: Yes (Other)
  Sender: FDA-Public Use
  Company Number: US201401080

PATIENT
  Age: 67 Year
  Sex: Male

DRUGS (1)
  1. PENTASA (MESALAZINE) [Suspect]
     Indication: PRODUCT USED FOR UNKNOWN INDICATION
     Route: 048
     Dates: start: 20140312

REACTIONS (1)
  - Hypersensitivity [None]
